FAERS Safety Report 7064207 (Version 30)
Quarter: 2015Q2

REPORT INFORMATION
  Report Type: Report from Study
  Country: GB (occurrence: GB)
  Receive Date: 20090727
  Receipt Date: 20150529
  Transmission Date: 20150821
  Serious: Yes (Life-Threatening, Hospitalization, Disabling, Congenital Anomaly, Other)
  Sender: FDA-Public Use
  Company Number: GB-B.I. PHARMACEUTICALS,INC./RIDGEFIELD-2009-UK-00635UK

PATIENT
  Age: 0 Day
  Sex: Female
  Weight: 2.2 kg

DRUGS (16)
  1. APTIVUS [Suspect]
     Active Substance: TIPRANAVIR
     Indication: MATERNAL EXPOSURE TIMING UNSPECIFIED
     Dosage: 1000 MG
     Route: 064
     Dates: start: 20060905, end: 20081023
  2. TRUVADA [Suspect]
     Active Substance: EMTRICITABINE\TENOFOVIR DISOPROXIL FUMARATE
     Indication: MATERNAL EXPOSURE TIMING UNSPECIFIED
     Dosage: 1 ANZ
     Route: 064
     Dates: start: 20070605, end: 20081023
  3. ETRAVIRINE [Suspect]
     Active Substance: ETRAVIRINE
     Indication: MATERNAL EXPOSURE TIMING UNSPECIFIED
     Dosage: 1000 MG
     Route: 064
     Dates: start: 20081023
  4. PREDNISOLONE. [Concomitant]
     Active Substance: PREDNISOLONE
     Indication: EXPOSURE DURING PREGNANCY
     Route: 064
  5. ZIDOVUDINE. [Concomitant]
     Active Substance: ZIDOVUDINE
     Indication: PRODUCT USED FOR UNKNOWN INDICATION
     Route: 064
  6. INTELENCE [Suspect]
     Active Substance: ETRAVIRINE
     Dosage: 1000 MG
     Route: 064
     Dates: start: 20081023
  7. NORVIR [Suspect]
     Active Substance: RITONAVIR
     Dosage: 200 MG
     Route: 064
     Dates: start: 20081023
  8. INSULIN [Concomitant]
     Active Substance: INSULIN NOS
     Indication: EXPOSURE DURING PREGNANCY
     Route: 064
  9. NORVIR [Suspect]
     Active Substance: RITONAVIR
     Indication: MATERNAL EXPOSURE TIMING UNSPECIFIED
     Dosage: 400 MG
     Route: 064
     Dates: start: 20060905, end: 20081022
  10. PREZISTA [Suspect]
     Active Substance: DARUNAVIR ETHANOLATE
     Indication: MATERNAL EXPOSURE TIMING UNSPECIFIED
     Dosage: 1200 MG
     Route: 064
     Dates: start: 20081023
  11. OXYGEN. [Concomitant]
     Active Substance: OXYGEN
     Indication: PRODUCT USED FOR UNKNOWN INDICATION
     Route: 065
  12. ISENTRESS [Suspect]
     Active Substance: RALTEGRAVIR POTASSIUM
     Indication: MATERNAL EXPOSURE TIMING UNSPECIFIED
     Dosage: 800 MG
     Route: 064
     Dates: start: 20081023, end: 20090221
  13. RALTEGRAVIR [Suspect]
     Active Substance: RALTEGRAVIR
     Indication: MATERNAL EXPOSURE TIMING UNSPECIFIED
     Dosage: 800 MG
     Route: 064
     Dates: start: 20081023, end: 20090221
  14. NITROUS OXIDE. [Concomitant]
     Active Substance: NITROUS OXIDE
     Indication: PRODUCT USED FOR UNKNOWN INDICATION
     Route: 065
  15. INTELENCE [Suspect]
     Active Substance: ETRAVIRINE
     Indication: MATERNAL EXPOSURE TIMING UNSPECIFIED
     Dosage: 4000 MG
     Route: 064
     Dates: start: 20081023
  16. NOVORAPID [Concomitant]
     Active Substance: INSULIN ASPART
     Indication: GESTATIONAL DIABETES
     Dosage: 400 MG
     Route: 064

REACTIONS (24)
  - Meconium stain [Recovered/Resolved with Sequelae]
  - Erythema [Recovered/Resolved]
  - Exomphalos [Recovered/Resolved with Sequelae]
  - Congenital genital malformation [Recovered/Resolved with Sequelae]
  - Blood iron decreased [Recovered/Resolved]
  - Pain in extremity [Recovered/Resolved]
  - Cloacal exstrophy [Recovered/Resolved with Sequelae]
  - Meningomyelocele [Recovered/Resolved with Sequelae]
  - Low birth weight baby [Unknown]
  - Bladder agenesis [Recovered/Resolved with Sequelae]
  - Genitalia external ambiguous [Recovered/Resolved with Sequelae]
  - Anal atresia [Recovered/Resolved with Sequelae]
  - Spine malformation [Recovered/Resolved with Sequelae]
  - Sepsis [Recovered/Resolved]
  - Musculoskeletal deformity [Recovered/Resolved with Sequelae]
  - Musculoskeletal discomfort [Recovered/Resolved with Sequelae]
  - Foetal exposure during pregnancy [Recovered/Resolved]
  - Caudal regression syndrome [Recovered/Resolved with Sequelae]
  - Umbilical cord abnormality [Recovered/Resolved with Sequelae]
  - Congenital anomaly [Unknown]
  - Lipodystrophy acquired [Unknown]
  - Tethered cord syndrome [Recovered/Resolved with Sequelae]
  - Premature baby [Not Recovered/Not Resolved]
  - Gastrointestinal malformation [Unknown]

NARRATIVE: CASE EVENT DATE: 20090221
